FAERS Safety Report 4560872-7 (Version None)
Quarter: 2005Q1

REPORT INFORMATION
  Report Type: 
  Country: None (occurrence: None)
  Receive Date: 20050121
  Receipt Date: 20050113
  Transmission Date: 20050727
  Serious: No
  Sender: FDA-Public Use
  Company Number: 2005UW00722

PATIENT
  Age: 75 Year
  Sex: Female
  Weight: 161 kg

DRUGS (6)
  1. ATACAND [Suspect]
     Indication: HYPERTENSION
     Dosage: 16 MG PO
     Route: 048
     Dates: start: 20050107
  2. HYDROCHLOROTHIAZIDE [Concomitant]
  3. INSULIN [Concomitant]
  4. AMARYL [Concomitant]
  5. AVANDIA [Concomitant]
  6. LORAZEPAM [Concomitant]

REACTIONS (3)
  - CARDIAC FAILURE [None]
  - FEELING ABNORMAL [None]
  - PANIC ATTACK [None]
